FAERS Safety Report 6782123-5 (Version None)
Quarter: 2010Q2

REPORT INFORMATION
  Report Type: 
  Country: None (occurrence: None)
  Receive Date: 20100621
  Receipt Date: 20100615
  Transmission Date: 20101027
  Serious: Yes (Other)
  Sender: FDA-Public Use
  Company Number: CA-MERCK-1006USA02394

PATIENT
  Age: 56 Year
  Sex: Female
  Weight: 57 kg

DRUGS (7)
  1. JANUVIA [Suspect]
     Route: 048
  2. AMARYL [Concomitant]
     Route: 065
  3. ASPIRIN [Concomitant]
     Route: 065
  4. CALCIUM (UNSPECIFIED) AND MAGNESIUM (UNSPECIFIED) [Concomitant]
     Route: 065
  5. CRESTOR [Concomitant]
     Route: 065
  6. METFORMIN [Concomitant]
     Route: 065
  7. MICARDIS [Concomitant]
     Route: 065

REACTIONS (6)
  - BLOOD GLUCOSE INCREASED [None]
  - HYPERHIDROSIS [None]
  - LIMB DISCOMFORT [None]
  - MALAISE [None]
  - PHARYNGEAL OEDEMA [None]
  - VOMITING [None]
